FAERS Safety Report 8567708 (Version 5)
Quarter: 2012Q4

REPORT INFORMATION
  Report Type: 
  Country: US (occurrence: US)
  Receive Date: 20120517
  Receipt Date: 20121001
  Transmission Date: 20130627
  Serious: Yes (Hospitalization, Other)
  Sender: FDA-Public Use
  Company Number: US-ELI_LILLY_AND_COMPANY-US201107002802

PATIENT
  Age: 78 Year
  Sex: Female
  Weight: 64.4 kg

DRUGS (5)
  1. FORTEO [Suspect]
     Indication: OSTEOPOROSIS
     Dosage: 20 ug, qd
     Dates: start: 201107
  2. FORTEO [Suspect]
     Dosage: 20 ug, qd
  3. FORTEO [Suspect]
     Dosage: 20 ug, qd
     Dates: start: 20120505
  4. COUMADIN [Concomitant]
     Dosage: UNK
  5. IRON [Concomitant]
     Dosage: UNK

REACTIONS (19)
  - Femur fracture [Recovered/Resolved]
  - Hip fracture [Recovered/Resolved]
  - Fall [Recovered/Resolved]
  - Nervousness [Unknown]
  - Eating disorder [Unknown]
  - Drug dose omission [Recovered/Resolved]
  - Drug dose omission [Recovered/Resolved]
  - Scoliosis [Unknown]
  - Head injury [Unknown]
  - Concussion [Unknown]
  - Headache [Unknown]
  - Decreased appetite [Unknown]
  - Malaise [Unknown]
  - Back pain [Unknown]
  - Pain in extremity [Unknown]
  - Movement disorder [Unknown]
  - Pain [Unknown]
  - Musculoskeletal pain [Unknown]
  - Thinking abnormal [Unknown]
